FAERS Safety Report 24147822 (Version 1)
Quarter: 2024Q3

REPORT INFORMATION
  Report Type: Spontaneous
  Country: US (occurrence: US)
  Receive Date: 20240729
  Receipt Date: 20240729
  Transmission Date: 20241016
  Serious: Yes (Death, Hospitalization)
  Sender: MYLAN
  Company Number: US-MYLANLABS-2024M1069664

PATIENT
  Age: 60 Year
  Sex: Male

DRUGS (2)
  1. CIDOFOVIR [Suspect]
     Active Substance: CIDOFOVIR
     Indication: Adenovirus infection
     Dosage: UNK
     Route: 065
  2. CIDOFOVIR [Suspect]
     Active Substance: CIDOFOVIR
     Indication: Pneumonitis

REACTIONS (1)
  - Drug ineffective [Fatal]
